FAERS Safety Report 7316017-3 (Version None)
Quarter: 2011Q1

REPORT INFORMATION
  Report Type: 
  Country: None (occurrence: None)
  Receive Date: 20110225
  Receipt Date: 20110217
  Transmission Date: 20110831
  Serious: Yes (Hospitalization)
  Sender: FDA-Public Use
  Company Number: PHHO2010DE03510

PATIENT
  Sex: Female
  Weight: 67 kg

DRUGS (4)
  1. SANDIMMUNE [Suspect]
     Indication: RENAL TRANSPLANT
     Dosage: 400 MG, BID
     Route: 048
     Dates: start: 20110211
  2. MYFORTIC [Suspect]
     Indication: RENAL TRANSPLANT
     Dosage: 2880 MG, PER DAY
     Route: 048
     Dates: start: 20100211, end: 20100226
  3. NO TREATMENT RECEIVED [Suspect]
     Indication: RENAL TRANSPLANT
  4. METHYLPREDNISOLONE [Concomitant]
     Dosage: 24MG

REACTIONS (6)
  - POISONING [None]
  - SYSTOLIC HYPERTENSION [None]
  - HYPERTENSIVE CRISIS [None]
  - NAUSEA [None]
  - GASTROENTERITIS [None]
  - VOMITING [None]
